FAERS Safety Report 8092712-6 (Version None)
Quarter: 2012Q1

REPORT INFORMATION
  Report Type: 
  Country: None (occurrence: None)
  Receive Date: 20120128
  Receipt Date: 20110803
  Transmission Date: 20120608
  Serious: No
  Sender: FDA-Public Use
  Company Number: US-ABBOTT-11P-163-0844086-00

PATIENT
  Sex: Female
  Weight: 108.96 kg

DRUGS (7)
  1. HUMIRA [Suspect]
     Indication: RHEUMATOID ARTHRITIS
     Dates: start: 20100101, end: 20110501
  2. ARAVA [Concomitant]
     Indication: RHEUMATOID ARTHRITIS
  3. PREDNISONE TAB [Concomitant]
     Indication: RHEUMATOID ARTHRITIS
  4. UNNAMED BLOOD PRESSURE MEDICATIONS [Concomitant]
     Indication: HYPERTENSION
  5. DITROPAN [Concomitant]
     Indication: URINARY INCONTINENCE
  6. DILAUDID [Concomitant]
     Indication: PAIN
  7. INSULIN [Concomitant]
     Indication: DIABETES MELLITUS

REACTIONS (6)
  - PAIN [None]
  - VOCAL CORD DISORDER [None]
  - INFLAMMATION [None]
  - OEDEMA PERIPHERAL [None]
  - DRUG INEFFECTIVE [None]
  - ARTHRALGIA [None]
